FAERS Safety Report 4503342-4 (Version None)
Quarter: 2004Q4

REPORT INFORMATION
  Report Type: 
  Country: None (occurrence: None)
  Receive Date: 20041112
  Receipt Date: 20041104
  Transmission Date: 20050328
  Serious: Yes (Hospitalization)
  Sender: FDA-Public Use
  Company Number: 209320

PATIENT
  Age: 37 Year
  Sex: Female

DRUGS (5)
  1. XOLAIR [Suspect]
     Indication: ASTHMA
     Dosage: 300 MG, 1/MONTH
     Dates: start: 20031222, end: 20041001
  2. ALLEGRA [Concomitant]
  3. XOPENEX [Concomitant]
  4. ADVAIR (SALMETEROL XINAFOATE, FLUTICASONE PROPIONATE) [Concomitant]
  5. ACCOLATE [Concomitant]

REACTIONS (6)
  - BRAIN OEDEMA [None]
  - FALL [None]
  - HEMIPLEGIA [None]
  - HYPOAESTHESIA [None]
  - IMPAIRED WORK ABILITY [None]
  - MIGRAINE [None]
